FAERS Safety Report 11050939 (Version 1)
Quarter: 2015Q2

REPORT INFORMATION
  Report Type: Spontaneous
  Country: US (occurrence: None)
  Receive Date: 20150420
  Receipt Date: 20150420
  Transmission Date: 20150821
  Serious: Yes (Life-Threatening, Hospitalization, Disabling, Congenital Anomaly)
  Sender: FDA-Public Use
  Company Number: None

PATIENT

DRUGS (1)
  1. ZOFRAN [Suspect]
     Active Substance: ONDANSETRON HYDROCHLORIDE

REACTIONS (14)
  - Ventricular septal defect [None]
  - Unevaluable event [None]
  - Craniosynostosis [None]
  - Sepsis [None]
  - Thrombosis [None]
  - Pulmonary hypertension [None]
  - Jaundice [None]
  - Weaning failure [None]
  - Surgery [None]
  - Hydrops foetalis [None]
  - Hernia [None]
  - Gastric disorder [None]
  - Dystonia [None]
  - Maternal drugs affecting foetus [None]

NARRATIVE: CASE EVENT DATE: 20130716
